FAERS Safety Report 25452605 (Version 1)
Quarter: 2025Q2

REPORT INFORMATION
  Report Type: Spontaneous
  Country: IE (occurrence: IE)
  Receive Date: 20250618
  Receipt Date: 20250618
  Transmission Date: 20250716
  Serious: Yes (Other)
  Sender: AMGEN
  Company Number: IE-AMGEN-IRLSP2025115832

PATIENT

DRUGS (1)
  1. CINACALCET HYDROCHLORIDE [Suspect]
     Active Substance: CINACALCET HYDROCHLORIDE
     Indication: Hyperparathyroidism secondary
     Dosage: UNK, MG, QD
     Route: 065

REACTIONS (9)
  - Hungry bone syndrome [Unknown]
  - Transplant dysfunction [Unknown]
  - Post procedural pneumonia [Unknown]
  - Hepatitis [Unknown]
  - Large intestinal obstruction [Unknown]
  - Gastrointestinal disorder [Unknown]
  - Haematoma [Unknown]
  - Hyponatraemia [Unknown]
  - Hypocalcaemia [Unknown]
